FAERS Safety Report 21886864 (Version 1)
Quarter: 2023Q1

REPORT INFORMATION
  Report Type: Spontaneous
  Country: US (occurrence: US)
  Receive Date: 20230119
  Receipt Date: 20230119
  Transmission Date: 20230418
  Serious: No
  Sender: FDA-Public Use
  Company Number: US-MYLANLABS-2022M1131943

PATIENT
  Sex: Female

DRUGS (29)
  1. GABAPENTIN [Suspect]
     Active Substance: GABAPENTIN
     Indication: Product used for unknown indication
     Dosage: 300 MILLIGRAM, BID (TAKE 1 CAPSULE BY ORAL ROUTE, 2 TIMES EVERY DAY)
     Route: 048
     Dates: start: 20220422
  2. GABAPENTIN [Suspect]
     Active Substance: GABAPENTIN
     Dosage: 1 DOSAGE FORM, PM (TAKE 1 CAPSULE BY MOUTH EVERY EVENING)
     Route: 048
     Dates: start: 20220307, end: 20220422
  3. GABAPENTIN [Suspect]
     Active Substance: GABAPENTIN
     Dosage: 1 DOSAGE FORM, PM (TAKE 1 CAPSULE BY MOUTH EVERY EVENING)
     Route: 048
     Dates: start: 20210618, end: 20211217
  4. GABAPENTIN [Suspect]
     Active Substance: GABAPENTIN
     Dosage: 1 DOSAGE FORM, PM (TAKE 1 CAPSULE BY MOUTH EVERY EVENING)
     Route: 048
     Dates: start: 20211217
  5. GABAPENTIN [Suspect]
     Active Substance: GABAPENTIN
     Dosage: 1 DOSAGE FORM, PM (TAKE 1 CAPSULE BY MOUTH EVERY EVENING)
     Route: 048
     Dates: start: 20201218, end: 20210618
  6. GABAPENTIN [Suspect]
     Active Substance: GABAPENTIN
     Dosage: 1 DOSAGE FORM, PM (TAKE 1 CAPSULE BY MOUTH EVERY EVENING)
     Route: 048
     Dates: start: 20201102, end: 20201218
  7. GABAPENTIN [Suspect]
     Active Substance: GABAPENTIN
     Dosage: 1 DOSAGE FORM, PM (TAKE 1 CAPSULE BY MOUTH EVERY EVENING)
     Route: 048
     Dates: start: 20201218
  8. GABAPENTIN [Suspect]
     Active Substance: GABAPENTIN
     Dosage: 1 DOSAGE FORM, PM (TAKE 1 CAPSULE BY MOUTH EVERY EVENING)
     Route: 048
     Dates: start: 20200219, end: 20200617
  9. GABAPENTIN [Suspect]
     Active Substance: GABAPENTIN
     Dosage: 1 DOSAGE FORM, PM (TAKE 1 CAPSULE BY MOUTH EVERY EVENING)
     Route: 048
     Dates: start: 20200617
  10. GABAPENTIN [Suspect]
     Active Substance: GABAPENTIN
     Dosage: 1 DOSAGE FORM (TAKE 1 CAPSULE BY MOUTH ONCE A DAY FOR ONE WEEK THEN TWICE A DAY IF NOT TOO DROWSY)
     Route: 048
     Dates: start: 20200217, end: 20200219
  11. GABAPENTIN [Suspect]
     Active Substance: GABAPENTIN
     Dosage: 1 DOSAGE FORM, TID (TAKE 1 CAPSULE BY ORAL ROUTE  TIMES EVERY DAY)
     Route: 048
     Dates: start: 20161128, end: 20161205
  12. AMITRIPTYLINE [Suspect]
     Active Substance: AMITRIPTYLINE
     Indication: Product used for unknown indication
     Dosage: 1 DOSAGE FORM, HS (TAKE 1 TABLET BY ORAL ROUTE EVERY DAY AT BEDTIME)
     Route: 048
     Dates: start: 20161205, end: 20190111
  13. TRIAMCINOLONE ACETONIDE [Concomitant]
     Active Substance: TRIAMCINOLONE ACETONIDE
     Indication: Dermatitis atopic
     Dosage: UNK, BID (APPLY BY TOPICAL ROUTE 2 TIMES EVERY DAY A THIN LAYER TO THE AFFECTED AREA(S)
     Route: 061
     Dates: start: 20220812
  14. CLOBETASOL [Concomitant]
     Active Substance: CLOBETASOL
     Indication: Dermatitis atopic
     Dosage: UNK, BID  (APPLY BY TOPICAL ROUTE 2 TIMES EVERY DAY A THIN LAYER TO THE AFFECTED AREA(S)
     Route: 061
     Dates: start: 20211217, end: 20220812
  15. CLOBETASOL [Concomitant]
     Active Substance: CLOBETASOL
     Dosage: UNK, BID (APPLY BY TOPICAL ROUTE 2 TIMES EVERY DAY A THIN LAYER TO THE AFFECTED AREA(S)
     Route: 061
     Dates: start: 20220812
  16. CLOBETASOL [Concomitant]
     Active Substance: CLOBETASOL
     Dosage: UNK, BID  (APPLY BY TOPICAL ROUTE 2 TIMES EVERY DAY A THIN LAYER TO THE AFFECTED AREA(S)
     Route: 061
     Dates: start: 20211217
  17. CLOBETASOL [Concomitant]
     Active Substance: CLOBETASOL
     Dosage: UNK, BID  (APPLY BY TOPICAL ROUTE 2 TIMES EVERY DAY A THIN LAYER TO THE AFFECTED AREA(S)
     Route: 061
     Dates: start: 20201218, end: 20211217
  18. CLOBETASOL [Concomitant]
     Active Substance: CLOBETASOL
     Dosage: UNK, BID  (APPLY BY TOPICAL ROUTE 2 TIMES EVERY DAY A THIN LAYER TO THE AFFECTED AREA(S)
     Route: 061
     Dates: start: 20201218
  19. CLOBETASOL [Concomitant]
     Active Substance: CLOBETASOL
     Dosage: UNK, BID  (APPLY BY TOPICAL ROUTE 2 TIMES EVERY DAY A THIN LAYER TO THE AFFECTED AREA(S)
     Route: 061
     Dates: start: 20200617, end: 20201218
  20. CLOBETASOL [Concomitant]
     Active Substance: CLOBETASOL
     Dosage: UNK, BID  (APPLY BY TOPICAL ROUTE 2 TIMES EVERY DAY A THIN LAYER TO THE AFFECTED AREA(S)
     Route: 061
     Dates: start: 20190111, end: 20200617
  21. CLOBETASOL [Concomitant]
     Active Substance: CLOBETASOL
     Dosage: UNK, BID  (APPLY BY TOPICAL ROUTE 2 TIMES EVERY DAY A THIN LAYER TO THE AFFECTED AREA(S)
     Route: 061
     Dates: start: 20200617
  22. CLOBETASOL [Concomitant]
     Active Substance: CLOBETASOL
     Dosage: UNK, BID
     Route: 061
     Dates: start: 20190111
  23. CLOBETASOL [Concomitant]
     Active Substance: CLOBETASOL
     Dosage: UNK, BID  (APPLY BY TOPICAL ROUTE 2 TIMES EVERY DAY A THIN LAYER TO THE AFFECTED AREA(S)
     Dates: start: 20161005, end: 20161205
  24. ATORVASTATIN [Concomitant]
     Active Substance: ATORVASTATIN
     Dosage: 10 MILLIGRAM, QD (TAKE 1 TABLET BY ORAL ROUTE, EVERY DAY)
     Route: 048
  25. LEVOCETIRIZINE [Concomitant]
     Active Substance: LEVOCETIRIZINE
     Dosage: 5 MILLIGRAM, PM (TAKE 1 TABLET BY ORAL ROUTE EVERY DAY IN THE EVENING)
     Route: 048
  26. PROVENTIL HFA [Concomitant]
     Active Substance: ALBUTEROL SULFATE
     Dosage: 2 DOSAGE FORM, PRN (INHALE 2 PUFF BY INHALATION ROUTE EVERY 4 - 6 HOURS AS NEEDED)
  27. MONTELUKAST [Concomitant]
     Active Substance: MONTELUKAST SODIUM
     Dosage: 10 MILLIGRAM, PM (TAKE 1 TABLET BY ORAL ROUTE  EVERY DAY IN THE EVENING)
     Route: 048
  28. METFORMIN [Concomitant]
     Active Substance: METFORMIN HYDROCHLORIDE
     Dosage: 500 MILLIGRAM, BID (TAKE 1 TABLET BY ORAL ROUTE 2 TIMES EVERY DAY WITH MORNING AND EVENING MEALS)
     Route: 065
  29. CIBINQO [Concomitant]
     Active Substance: ABROCITINIB
     Dosage: 100 MILLIGRAM, QD
     Route: 048

REACTIONS (2)
  - Sedation [Unknown]
  - Inappropriate schedule of product administration [Unknown]
